FAERS Safety Report 10652260 (Version 1)
Quarter: 2014Q4

REPORT INFORMATION
  Report Type: Spontaneous
  Country: US (occurrence: US)
  Receive Date: 20141215
  Receipt Date: 20141215
  Transmission Date: 20150529
  Serious: No
  Sender: FDA-Public Use
  Company Number: US-009507513-1412USA006473

PATIENT
  Age: 55 Year
  Sex: Male

DRUGS (1)
  1. IVERMECTIN. [Suspect]
     Active Substance: IVERMECTIN
     Indication: SEPTIC SHOCK
     Dosage: UNK
     Route: 048

REACTIONS (1)
  - Drug ineffective [Unknown]
